FAERS Safety Report 9805033 (Version 1)
Quarter: 2014Q1

REPORT INFORMATION
  Report Type: Report from Study
  Country: US (occurrence: US)
  Receive Date: 20140109
  Receipt Date: 20140109
  Transmission Date: 20141002
  Serious: Yes (Death)
  Sender: FDA-Public Use
  Company Number: US-ROCHE-1323733

PATIENT
  Sex: Male

DRUGS (16)
  1. XELODA [Suspect]
     Indication: COLON CANCER
     Dosage: 1200/M2 BID X 7; OFF 7 Q 2 WEEKS = 2400 BID X 7
     Route: 048
  2. AVASTIN [Suspect]
     Indication: COLON CANCER
     Route: 042
  3. AVASTIN [Suspect]
     Dosage: 9/AUG/2011
     Route: 042
  4. AVASTIN [Suspect]
     Dosage: 22/AUG/2011
     Route: 042
  5. AVASTIN [Suspect]
     Dosage: 06/SEP/2011, , 21/SEP/2011, 5/OCT/2011, 03/JAN/2012, 17/JAN/2012, 31/JAN/2012, 14/FEB/2012, 28/FEB/2
     Route: 042
  6. AVASTIN [Suspect]
     Dosage: 14/MAR/2012.
     Route: 042
  7. AVASTIN [Suspect]
     Route: 042
     Dates: start: 20110103
  8. DECADRON [Concomitant]
     Route: 042
  9. IRINOTECAN [Concomitant]
     Route: 042
  10. ALOXI [Concomitant]
     Route: 042
  11. ATROPINE [Concomitant]
     Route: 042
  12. PROCRIT [Concomitant]
     Route: 058
  13. GRANISETRON [Concomitant]
     Route: 042
  14. OXALIPLATIN [Concomitant]
     Route: 042
  15. OXALIPLATIN [Concomitant]
     Route: 042
  16. OXALIPLATIN [Concomitant]
     Dosage: 06/SEP/2011
     Route: 042

REACTIONS (2)
  - Colon cancer [Fatal]
  - Disease progression [Not Recovered/Not Resolved]
